FAERS Safety Report 15106469 (Version 7)
Quarter: 2020Q1

REPORT INFORMATION
  Report Type: Spontaneous
  Country: US (occurrence: US)
  Receive Date: 20180704
  Receipt Date: 20200129
  Transmission Date: 20200409
  Serious: Yes (Other)
  Sender: FDA-Public Use
  Company Number: PHEH2018US027500

PATIENT
  Sex: Female

DRUGS (4)
  1. ZOFRAN [Suspect]
     Active Substance: ONDANSETRON HYDROCHLORIDE
     Dosage: 4 MG, Q8H, PRN
     Route: 042
     Dates: start: 20040221, end: 20040221
  2. ZOFRAN [Suspect]
     Active Substance: ONDANSETRON HYDROCHLORIDE
     Dosage: 4 MG, Q4H
     Route: 042
     Dates: start: 20040504, end: 20040505
  3. ZOFRAN [Suspect]
     Active Substance: ONDANSETRON HYDROCHLORIDE
     Indication: HYPEREMESIS GRAVIDARUM
     Dosage: UNK
     Route: 042
     Dates: start: 20031231, end: 20031231
  4. ZOFRAN [Suspect]
     Active Substance: ONDANSETRON HYDROCHLORIDE
     Indication: MORNING SICKNESS
     Route: 048
     Dates: start: 20040106, end: 20040106

REACTIONS (21)
  - Maternal exposure during pregnancy [Unknown]
  - Emotional distress [Unknown]
  - Haematuria [Unknown]
  - Flank pain [Unknown]
  - Dizziness [Unknown]
  - Premature labour [Unknown]
  - Abdominal pain [Unknown]
  - Influenza [Unknown]
  - Haemoglobin decreased [Unknown]
  - Nocturia [Unknown]
  - Renal colic [Unknown]
  - Dehydration [Unknown]
  - Product use in unapproved indication [Unknown]
  - Hydronephrosis [Unknown]
  - Injury [Unknown]
  - Fall [Unknown]
  - Uterine spasm [Unknown]
  - Back pain [Unknown]
  - Nephrolithiasis [Unknown]
  - Anxiety [Unknown]
  - Urinary tract infection [Unknown]
